FAERS Safety Report 4692655-1 (Version None)
Quarter: 2005Q2

REPORT INFORMATION
  Report Type: 
  Country: None (occurrence: None)
  Receive Date: 20050617
  Receipt Date: 20050429
  Transmission Date: 20051028
  Serious: Yes (Hospitalization, Other)
  Sender: FDA-Public Use
  Company Number: US-ABBOTT-05P-144-0299357-01

PATIENT
  Sex: Female

DRUGS (17)
  1. HUMIRA [Suspect]
     Indication: ANKYLOSING SPONDYLITIS
     Route: 058
     Dates: start: 20040708, end: 20050303
  2. CLONAZEPAM [Concomitant]
     Indication: ANXIETY
     Dates: start: 20040501, end: 20040806
  3. CLONAZEPAM [Concomitant]
     Indication: INSOMNIA
     Dosage: 2-3 TABS
     Dates: start: 20040806
  4. ATORVASTATIN CALCIUM [Concomitant]
     Indication: BLOOD CHOLESTEROL INCREASED
     Dates: start: 19890101
  5. DOXEPIN HCL [Concomitant]
     Indication: INSOMNIA
     Dates: start: 20040101
  6. HYDROCODONE BITARTRATE [Concomitant]
     Indication: PAIN
     Dosage: 1-2 TABS
     Dates: start: 20010101
  7. SPIRONOLACTONE [Concomitant]
     Indication: RENAL FAILURE
     Dates: start: 19960101
  8. EXCEDRIN (MIGRAINE) [Concomitant]
     Indication: HEADACHE
     Dosage: 1-2 TABS
     Dates: start: 20040910
  9. MULTI-VITAMINS [Concomitant]
     Indication: VITAMIN SUPPLEMENTATION
     Dates: start: 20040101
  10. PSYLLIUM HYDROPHILIC MUCILLOID [Concomitant]
     Indication: IRRITABLE BOWEL SYNDROME
     Dates: start: 20040101
  11. CAPSAICIN [Concomitant]
     Indication: ARTHRALGIA
     Dates: start: 19940101
  12. TOCOPHEROL CONCENTRATE CAP [Concomitant]
     Indication: VITAMIN SUPPLEMENTATION
     Dates: start: 20040101
  13. LEVOTHYROXINE SODIUM [Concomitant]
     Indication: HYPOTHYROIDISM
     Dates: start: 19640101
  14. FENOFIBRATE [Concomitant]
     Indication: BLOOD CHOLESTEROL INCREASED
     Dates: start: 20041015, end: 20041117
  15. NEOTRACIN [Concomitant]
     Indication: RASH
     Dates: start: 20041014, end: 20041018
  16. ATORVASTATIN CALCIUM [Concomitant]
     Dates: start: 20041117
  17. ZETIA [Concomitant]
     Indication: BLOOD CHOLESTEROL INCREASED
     Dates: start: 20041117

REACTIONS (1)
  - OESOPHAGEAL RUPTURE [None]
